FAERS Safety Report 5591148-7 (Version None)
Quarter: 2008Q1

REPORT INFORMATION
  Report Type: 
  Country: None (occurrence: None)
  Receive Date: 20080110
  Receipt Date: 20071225
  Transmission Date: 20080703
  Serious: Yes (Disabling)
  Sender: FDA-Public Use
  Company Number: 805#8#2007-00067

PATIENT
  Age: 35 Year
  Sex: Male

DRUGS (3)
  1. ALPROSTADIL [Suspect]
     Indication: SKIN OPERATION
     Dosage: 120 MCG INTRAVENOUS DRIP
     Route: 041
  2. HEPARIN [Concomitant]
  3. ABBOKINASE [Concomitant]

REACTIONS (3)
  - NECROSIS [None]
  - VENIPUNCTURE SITE THROMBOSIS [None]
  - VESSEL PUNCTURE SITE HAEMATOMA [None]
